FAERS Safety Report 17059065 (Version 2)
Quarter: 2020Q4

REPORT INFORMATION
  Report Type: Other
  Country: IT (occurrence: IT)
  Receive Date: 20191121
  Receipt Date: 20201223
  Transmission Date: 20210113
  Serious: Yes (Hospitalization, Other)
  Sender: FDA-Public Use
  Company Number: IT-VALIDUS PHARMACEUTICALS LLC-IT-2019VAL000788

PATIENT

DRUGS (12)
  1. LORAZEPAM. [Suspect]
     Active Substance: LORAZEPAM
     Indication: INTENTIONAL SELF-INJURY
     Dosage: 4 DF, TOTAL
     Route: 048
     Dates: start: 20190923, end: 20190923
  2. CARBAMAZEPINE. [Suspect]
     Active Substance: CARBAMAZEPINE
     Indication: INTENTIONAL SELF-INJURY
     Dosage: 800 MG, TOTAL
     Route: 048
     Dates: start: 20190923, end: 20190923
  3. CLONAZEPAM. [Suspect]
     Active Substance: CLONAZEPAM
     Indication: INTENTIONAL SELF-INJURY
     Dosage: 6 MG, TOTAL
     Route: 048
     Dates: start: 20190923, end: 20190923
  4. CARBAMAZEPINE. [Suspect]
     Active Substance: CARBAMAZEPINE
     Indication: GENERALISED TONIC-CLONIC SEIZURE
  5. LUVION                             /00252502/ [Suspect]
     Active Substance: CANRENOATE POTASSIUM
     Indication: INTENTIONAL SELF-INJURY
     Dosage: 1500 MG, TOTAL
     Route: 048
     Dates: start: 20190923, end: 20190923
  6. LASIX [Suspect]
     Active Substance: FUROSEMIDE
     Indication: INTENTIONAL SELF-INJURY
     Dosage: 150 MG, TOTAL
     Route: 048
     Dates: start: 20190923, end: 20190923
  7. LASIX [Suspect]
     Active Substance: FUROSEMIDE
     Indication: DRUG ABUSE
  8. COUMADIN [Suspect]
     Active Substance: WARFARIN SODIUM
     Indication: DRUG ABUSE
  9. LORAZEPAM. [Suspect]
     Active Substance: LORAZEPAM
     Indication: ANXIETY
  10. CLONAZEPAM. [Suspect]
     Active Substance: CLONAZEPAM
     Indication: PANIC ATTACK
  11. LUVION                             /00252502/ [Suspect]
     Active Substance: CANRENOATE POTASSIUM
     Indication: DRUG ABUSE
  12. COUMADIN [Suspect]
     Active Substance: WARFARIN SODIUM
     Indication: INTENTIONAL SELF-INJURY
     Dosage: 5 DF, TOTAL
     Route: 048
     Dates: start: 20190923, end: 20190923

REACTIONS (7)
  - Sopor [Recovering/Resolving]
  - Poverty of speech [Recovering/Resolving]
  - Drug abuse [Unknown]
  - Renal impairment [Recovering/Resolving]
  - Renal failure [Recovering/Resolving]
  - International normalised ratio increased [Recovering/Resolving]
  - Intentional self-injury [Recovering/Resolving]

NARRATIVE: CASE EVENT DATE: 20190923
